FAERS Safety Report 8398071-3 (Version None)
Quarter: 2012Q2

REPORT INFORMATION
  Report Type: 
  Country: None (occurrence: None)
  Receive Date: 20120323
  Receipt Date: 20110112
  Transmission Date: 20120825
  Serious: Yes (Other)
  Sender: FDA-Public Use
  Company Number: 163-21880-11011340

PATIENT
  Age: 60 Year
  Sex: Female

DRUGS (8)
  1. OXYCODONE HCL [Concomitant]
  2. PRILOSEC [Concomitant]
  3. POTASSIUM CHLORIDE [Concomitant]
  4. ZOCOR [Concomitant]
  5. OXYCONTIN [Concomitant]
  6. REVLIMID [Suspect]
     Indication: MULTIPLE MYELOMA
     Dosage: 25 MG, Q DAY FOR 21 DAYS, PO
     Route: 048
     Dates: start: 20090501, end: 20100428
  7. DETROL [Concomitant]
  8. ALDACTONE [Concomitant]

REACTIONS (2)
  - RASH [None]
  - PULMONARY EMBOLISM [None]
